FAERS Safety Report 11806840 (Version 1)
Quarter: 2015Q4

REPORT INFORMATION
  Report Type: Spontaneous
  Country: US (occurrence: US)
  Receive Date: 20151207
  Receipt Date: 20151207
  Transmission Date: 20160305
  Serious: Yes (Other)
  Sender: FDA-Public Use
  Company Number: US-JNJFOC-20151201317

PATIENT
  Age: 83 Year
  Sex: Female

DRUGS (2)
  1. CONCERTA [Suspect]
     Active Substance: METHYLPHENIDATE HYDROCHLORIDE
     Indication: HYPERTENSION
     Dosage: 72 MG/DAY
     Route: 048
  2. CONCERTA [Suspect]
     Active Substance: METHYLPHENIDATE HYDROCHLORIDE
     Indication: ANXIETY
     Dosage: 72 MG/DAY
     Route: 048

REACTIONS (7)
  - Influenza [Recovered/Resolved]
  - Adverse event [Unknown]
  - Product use issue [Unknown]
  - Inappropriate schedule of drug administration [Unknown]
  - Off label use [Unknown]
  - Drug effect decreased [Unknown]
  - Counterfeit drug administered [Unknown]

NARRATIVE: CASE EVENT DATE: 201510
